FAERS Safety Report 6307004-2 (Version None)
Quarter: 2009Q3

REPORT INFORMATION
  Report Type: 
  Country: None (occurrence: None)
  Receive Date: 20090812
  Receipt Date: 20090806
  Transmission Date: 20100115
  Serious: Yes (Hospitalization)
  Sender: FDA-Public Use
  Company Number: JP-EISAI INC.-E2090-00805-SPO-JP

PATIENT
  Sex: Female

DRUGS (13)
  1. EXCEGRAN [Suspect]
     Indication: EPILEPSY
     Route: 048
     Dates: end: 20090101
  2. TAKEPRON [Concomitant]
     Indication: GASTRIC ULCER
     Dates: start: 20090331, end: 20090707
  3. NORVASC [Concomitant]
     Indication: HYPERTENSION
     Dates: start: 20090331
  4. MUCOSTA [Concomitant]
     Indication: GASTRIC ULCER
     Route: 048
     Dates: start: 20090330, end: 20090707
  5. PANTOSIN [Concomitant]
     Indication: CONSTIPATION
     Route: 048
     Dates: start: 20090416, end: 20090707
  6. SERMION [Concomitant]
     Route: 048
     Dates: start: 20090512, end: 20090707
  7. LASIX [Concomitant]
     Route: 048
  8. ALDACTONE [Concomitant]
     Route: 048
  9. MAGMITT [Concomitant]
     Indication: CONSTIPATION
     Route: 048
     Dates: end: 20090729
  10. URSO 250 [Concomitant]
     Indication: CHOLESTASIS
     Route: 048
     Dates: end: 20090729
  11. SELBEX [Concomitant]
     Indication: GASTRIC ULCER
     Route: 048
     Dates: start: 20090708, end: 20090721
  12. SALUMOSIN [Concomitant]
     Route: 048
     Dates: start: 20090708, end: 20090728
  13. TAPIZOL [Concomitant]
     Indication: GASTRIC ULCER
     Route: 048
     Dates: start: 20090708, end: 20090729

REACTIONS (1)
  - CALCULUS URETERIC [None]
